FAERS Safety Report 9879545 (Version 1)
Quarter: 2014Q1

REPORT INFORMATION
  Report Type: Spontaneous
  Country: US (occurrence: US)
  Receive Date: 20140206
  Receipt Date: 20140206
  Transmission Date: 20141002
  Serious: Yes (Other)
  Sender: FDA-Public Use
  Company Number: US-ACTAVIS-2014-01353

PATIENT
  Age: 55 Year
  Sex: Male

DRUGS (6)
  1. CYCLOBENZAPRINE HYDROCHLORIDE (WATSON LABORATORIES) [Suspect]
     Indication: INTERVERTEBRAL DISCITIS
     Dosage: 10 MG, TID
     Route: 065
  2. CYCLOBENZAPRINE HYDROCHLORIDE (WATSON LABORATORIES) [Interacting]
     Indication: SPINAL PAIN
  3. OXYCODONE HYDROCHLORIDE CONTROLLED RELEASE [Interacting]
     Indication: INTERVERTEBRAL DISCITIS
     Dosage: UNKNOWN - LONG- AND SHORT-ACTING OXYCODONE
     Route: 065
  4. OXYCODONE HYDROCHLORIDE CONTROLLED RELEASE [Interacting]
     Indication: SPINAL PAIN
  5. ERTAPENEM SODIUM [Concomitant]
     Indication: INTERVERTEBRAL DISCITIS
     Dosage: UNKNOWN
     Route: 065
  6. DAPTOMYCIN [Concomitant]
     Indication: INTERVERTEBRAL DISCITIS
     Dosage: UNKNOWN
     Route: 065

REACTIONS (5)
  - Serotonin syndrome [Recovered/Resolved]
  - Psychotic disorder [Recovered/Resolved]
  - Myoclonus [Recovered/Resolved]
  - Dystonia [Recovered/Resolved]
  - Potentiating drug interaction [Recovered/Resolved]
